FAERS Safety Report 7218232-6 (Version None)
Quarter: 2011Q1

REPORT INFORMATION
  Report Type: 
  Country: None (occurrence: None)
  Receive Date: 20110110
  Receipt Date: 20101216
  Transmission Date: 20110831
  Serious: Yes (Hospitalization, Other)
  Sender: FDA-Public Use
  Company Number: US-BAYER-201010216NA

PATIENT
  Sex: Female
  Weight: 104.55 kg

DRUGS (6)
  1. ANTIBIOTICS [Concomitant]
  2. YASMIN [Suspect]
     Indication: MENSTRUAL DISORDER
  3. ASPIRIN [Concomitant]
     Dates: start: 20020101
  4. LISINOPRIL [Concomitant]
  5. MEGESTROL ACETATE [Concomitant]
     Dosage: 40 MG, UNK
     Dates: start: 20020101, end: 20020601
  6. YASMIN [Suspect]
     Indication: MENSTRUAL CYCLE MANAGEMENT
     Route: 048
     Dates: start: 20020701, end: 20021001

REACTIONS (9)
  - CONFUSIONAL STATE [None]
  - CHOLECYSTITIS CHRONIC [None]
  - ISCHAEMIC CEREBRAL INFARCTION [None]
  - DYSARTHRIA [None]
  - AMNESIA [None]
  - CHOLELITHIASIS [None]
  - DISTURBANCE IN ATTENTION [None]
  - APHASIA [None]
  - HEADACHE [None]
